FAERS Safety Report 25258265 (Version 4)
Quarter: 2025Q4

REPORT INFORMATION
  Report Type: Report from Study
  Country: US (occurrence: US)
  Receive Date: 20250501
  Receipt Date: 20251211
  Transmission Date: 20260118
  Serious: Yes (Hospitalization, Other)
  Sender: ABBVIE
  Company Number: US-ABBVIE-6257756

PATIENT
  Age: 51 Year
  Sex: Female

DRUGS (4)
  1. SKYRIZI [Suspect]
     Active Substance: RISANKIZUMAB-RZAA
     Indication: Crohn^s disease
     Dosage: 180MG/1.2ML WEEK 12. LAST ADMIN: 2025
     Route: 058
     Dates: start: 20250627
  2. SKYRIZI [Suspect]
     Active Substance: RISANKIZUMAB-RZAA
     Indication: Crohn^s disease
     Dosage: 1ST INFUSION ONE IN ONCE FREQUENCY WEEK 0
     Route: 042
     Dates: start: 20250320, end: 20250320
  3. SKYRIZI [Suspect]
     Active Substance: RISANKIZUMAB-RZAA
     Indication: Crohn^s disease
     Dosage: WEEK 4
     Route: 042
     Dates: start: 20250502, end: 20250502
  4. SKYRIZI [Suspect]
     Active Substance: RISANKIZUMAB-RZAA
     Indication: Crohn^s disease
     Dosage: WEEK 8
     Route: 042
     Dates: start: 20250530, end: 20250530

REACTIONS (3)
  - Crohn^s disease [Unknown]
  - Fatigue [Unknown]
  - Scar [Recovering/Resolving]

NARRATIVE: CASE EVENT DATE: 20250101
